FAERS Safety Report 5378750-2 (Version None)
Quarter: 2007Q3

REPORT INFORMATION
  Report Type: 
  Country: None (occurrence: None)
  Receive Date: 20070705
  Receipt Date: 20070703
  Transmission Date: 20080115
  Serious: Yes (Hospitalization)
  Sender: FDA-Public Use
  Company Number: B0477563A

PATIENT
  Age: 43 Year
  Sex: Female

DRUGS (7)
  1. PAXIL [Suspect]
     Indication: DEPRESSION
     Dosage: 20MG PER DAY
     Route: 048
     Dates: start: 20070324, end: 20070510
  2. MEILAX [Concomitant]
     Route: 048
     Dates: start: 20070324, end: 20070428
  3. HALCION [Concomitant]
     Route: 048
     Dates: start: 20070324, end: 20070428
  4. ZOLPIDEM [Concomitant]
     Route: 048
     Dates: start: 20070428
  5. GRANDAXIN [Concomitant]
     Route: 048
     Dates: start: 20070428
  6. GASMOTIN [Concomitant]
     Route: 048
     Dates: start: 20070428
  7. MUCOSTA [Concomitant]
     Route: 048
     Dates: start: 20070428

REACTIONS (3)
  - DEPRESSED LEVEL OF CONSCIOUSNESS [None]
  - OVERDOSE [None]
  - SELF MUTILATION [None]
